FAERS Safety Report 10455899 (Version 1)
Quarter: 2014Q3

REPORT INFORMATION
  Report Type: Report from Study
  Country: RU (occurrence: RU)
  Receive Date: 20140916
  Receipt Date: 20140916
  Transmission Date: 20150326
  Serious: Yes (Hospitalization)
  Sender: FDA-Public Use
  Company Number: RU-ROCHE-1460876

PATIENT
  Age: 56 Year
  Sex: Female
  Weight: 59 kg

DRUGS (14)
  1. RIBAVIRIN. [Suspect]
     Active Substance: RIBAVIRIN
     Dosage: 3 CAPSULE
     Route: 048
     Dates: start: 20131010, end: 20131112
  2. PEGINTERFERON ALFA-2A [Suspect]
     Active Substance: PEGINTERFERON ALFA-2A
     Route: 058
     Dates: start: 20131211, end: 20131211
  3. RIBAVIRIN. [Suspect]
     Active Substance: RIBAVIRIN
     Indication: CHRONIC HEPATITIS C
     Dosage: 3 CAPSULE?DATE OF LAST DOSE PRIOR TO SAE: 01/JAN/2014
     Route: 048
     Dates: start: 20131009, end: 20131009
  4. FUROSEMIDE. [Concomitant]
     Active Substance: FUROSEMIDE
     Indication: OEDEMA PERIPHERAL
     Route: 048
     Dates: start: 201401, end: 201402
  5. ALBUMIN HUMAN [Concomitant]
     Active Substance: ALBUMIN (HUMAN)
     Indication: OEDEMA PERIPHERAL
     Route: 065
     Dates: start: 201401, end: 201401
  6. MK-3034 [Suspect]
     Active Substance: BOCEPREVIR
     Indication: CHRONIC HEPATITIS C
     Dosage: 4 CAPSULE?DATE OF LAST DOSE PRIOR TO SAE: 12/DEC/2014
     Route: 048
     Dates: start: 20131106, end: 20131106
  7. PEGINTERFERON ALFA-2A [Suspect]
     Active Substance: PEGINTERFERON ALFA-2A
     Route: 058
     Dates: start: 20140101, end: 20140101
  8. RIBAVIRIN. [Suspect]
     Active Substance: RIBAVIRIN
     Dosage: 2 CAPSULE
     Route: 048
     Dates: start: 20131113, end: 20131127
  9. MK-3034 [Suspect]
     Active Substance: BOCEPREVIR
     Dosage: 4 CAPSULE, IN THE NIGHT
     Route: 048
     Dates: start: 20131106, end: 20131212
  10. PEGINTERFERON ALFA-2A [Suspect]
     Active Substance: PEGINTERFERON ALFA-2A
     Route: 058
     Dates: start: 20131218, end: 20131225
  11. PEGINTERFERON ALFA-2A [Suspect]
     Active Substance: PEGINTERFERON ALFA-2A
     Indication: CHRONIC HEPATITIS C
     Dosage: DATE OF LAST DOSE PRIOR TO SAE: 28/NOV/2013
     Route: 058
     Dates: start: 20131009, end: 20131204
  12. RIBAVIRIN. [Suspect]
     Active Substance: RIBAVIRIN
     Dosage: 2 CAPSULE
     Route: 048
     Dates: start: 20131010, end: 20131127
  13. RIBAVIRIN. [Suspect]
     Active Substance: RIBAVIRIN
     Dosage: 1 CAPSULE
     Route: 048
     Dates: start: 20131128, end: 20131128
  14. MK-3034 [Suspect]
     Active Substance: BOCEPREVIR
     Dosage: 4 CAPSULES, IN MORNING AND AFTENOON
     Route: 048
     Dates: start: 20131107, end: 20131213

REACTIONS (1)
  - Pleurisy [Recovered/Resolved]

NARRATIVE: CASE EVENT DATE: 20140103
